FAERS Safety Report 9221961 (Version 1)
Quarter: 2013Q2

REPORT INFORMATION
  Report Type: Spontaneous
  Country: US (occurrence: None)
  Receive Date: 20130410
  Receipt Date: 20130410
  Transmission Date: 20140414
  Serious: Yes (Life-Threatening, Disabling)
  Sender: FDA-Public Use
  Company Number: None

PATIENT
  Sex: Male
  Weight: 100 kg

DRUGS (2)
  1. WARFARIN 5 MG [Suspect]
     Indication: ATRIAL FIBRILLATION
     Dosage: 5 MG  DAILY  PO?YEARS
     Route: 048
  2. CLOPIDOGREL 75 MG [Suspect]
     Dosage: 75 MG  DAILY  PO?YEARS
     Route: 048

REACTIONS (1)
  - Cerebral haemorrhage [None]
